FAERS Safety Report 21708678 (Version 1)
Quarter: 2022Q4

REPORT INFORMATION
  Report Type: Report from Study
  Country: US (occurrence: US)
  Receive Date: 20221210
  Receipt Date: 20221210
  Transmission Date: 20230112
  Serious: No
  Sender: FDA-Public Use
  Company Number: US-ABBVIE-4222780

PATIENT
  Sex: Female

DRUGS (2)
  1. HUMIRA [Suspect]
     Active Substance: ADALIMUMAB
     Indication: Rheumatoid arthritis
     Dosage: FORM STRENGTH: 40 MILLIGRAM, THERAPY END DATE WAS 2022
     Route: 058
     Dates: start: 20220728
  2. HUMIRA [Suspect]
     Active Substance: ADALIMUMAB
     Indication: Ankylosing spondylitis
     Dosage: THERAPY START DATE WAS 2022.
     Route: 058

REACTIONS (12)
  - Condition aggravated [Unknown]
  - Joint swelling [Unknown]
  - Joint stiffness [Unknown]
  - Injection site haemorrhage [Unknown]
  - Neck pain [Unknown]
  - Arthralgia [Unknown]
  - Paraesthesia [Unknown]
  - Pain [Unknown]
  - Drug ineffective [Not Recovered/Not Resolved]
  - Malaise [Unknown]
  - Back pain [Unknown]
  - Mobility decreased [Unknown]
